FAERS Safety Report 7952596-0 (Version None)
Quarter: 2011Q4

REPORT INFORMATION
  Report Type: 
  Country: None (occurrence: None)
  Receive Date: 20111201
  Receipt Date: 20111122
  Transmission Date: 20120403
  Serious: Yes (Other)
  Sender: FDA-Public Use
  Company Number: US-ABBOTT-11P-163-0878106-00

PATIENT
  Age: 56 Year
  Sex: Male

DRUGS (5)
  1. FOLIC ACID [Concomitant]
     Indication: VITAMIN SUPPLEMENTATION
  2. HUMIRA [Suspect]
     Indication: RHEUMATOID ARTHRITIS
     Dates: start: 20090101
  3. METHOTREXATE [Concomitant]
     Indication: PRODUCT USED FOR UNKNOWN INDICATION
     Dosage: 8 TABLETS WEEKLY
  4. UNKNOWN BLOOD PRESSURE MEDICATION [Concomitant]
     Indication: PRODUCT USED FOR UNKNOWN INDICATION
  5. UNKNOWN ASTHMA MEDICATION [Concomitant]
     Indication: ASTHMA

REACTIONS (9)
  - DISTURBANCE IN ATTENTION [None]
  - UMBILICAL HERNIA [None]
  - PYREXIA [None]
  - OROPHARYNGEAL PAIN [None]
  - PAIN [None]
  - INFLUENZA LIKE ILLNESS [None]
  - LETHARGY [None]
  - SINUS CONGESTION [None]
  - RHINORRHOEA [None]
